FAERS Safety Report 25931701 (Version 1)
Quarter: 2025Q4

REPORT INFORMATION
  Report Type: Spontaneous
  Country: US (occurrence: None)
  Receive Date: 20251016
  Receipt Date: 20251016
  Transmission Date: 20260118
  Serious: Yes (Hospitalization)
  Sender: FDA-CTU
  Company Number: None

PATIENT
  Age: 61 Year
  Sex: Male

DRUGS (2)
  1. TAVNEOS [Suspect]
     Active Substance: AVACOPAN
     Dosage: FREQUENCY : TWICE A DAY;?
     Route: 048
  2. TAVNEOS [Concomitant]
     Active Substance: AVACOPAN
     Dates: start: 20250718

REACTIONS (11)
  - Nausea [None]
  - Chromatopsia [None]
  - Mental disorder [None]
  - Insomnia [None]
  - Withdrawal syndrome [None]
  - Thinking abnormal [None]
  - Mood altered [None]
  - Blood pressure increased [None]
  - Weight decreased [None]
  - Hypotonia [None]
  - Candida infection [None]

NARRATIVE: CASE EVENT DATE: 20251016
